FAERS Safety Report 18035486 (Version 1)
Quarter: 2020Q3

REPORT INFORMATION
  Report Type: Spontaneous
  Country: US (occurrence: US)
  Receive Date: 20200716
  Receipt Date: 20200716
  Transmission Date: 20201103
  Serious: Yes (Hospitalization)
  Sender: FDA-Public Use
  Company Number: None

PATIENT
  Sex: Female

DRUGS (8)
  1. NAPROXEN. [Concomitant]
     Active Substance: NAPROXEN
  2. DESLORATADIN [Concomitant]
     Active Substance: DESLORATADINE
  3. PREDNISONE. [Concomitant]
     Active Substance: PREDNISONE
  4. ENBREL [Suspect]
     Active Substance: ETANERCEPT
     Indication: RHEUMATOID ARTHRITIS
     Route: 058
     Dates: start: 20140708
  5. METFORMIN [Concomitant]
     Active Substance: METFORMIN HYDROCHLORIDE
  6. HYDROCHLOR [Concomitant]
  7. MYRBETRIQ [Concomitant]
     Active Substance: MIRABEGRON
  8. MULT VIT [Concomitant]

REACTIONS (2)
  - Therapy interrupted [None]
  - Cerebrovascular accident [None]
